FAERS Safety Report 10075912 (Version 6)
Quarter: 2014Q4

REPORT INFORMATION
  Report Type: Spontaneous
  Country: US (occurrence: None)
  Receive Date: 20140321
  Receipt Date: 20141014
  Transmission Date: 20150528
  Serious: Yes (Hospitalization)
  Sender: FDA-Public Use
  Company Number: US-000789

PATIENT
  Age: 27 Year
  Sex: Male

DRUGS (5)
  1. SOLUTIONS FOR PARAENTERAL NUTRITION [Concomitant]
  2. VITAMIN D [Concomitant]
     Active Substance: CHOLECALCIFEROL
  3. GATTEX [Suspect]
     Active Substance: TEDUGLUTIDE\WATER
     Indication: SHORT-BOWEL SYNDROME
     Route: 058
     Dates: start: 20130617, end: 2013
  4. WARFARIN [Concomitant]
     Active Substance: WARFARIN
  5. LASIX [Concomitant]
     Active Substance: FUROSEMIDE

REACTIONS (24)
  - Confusional state [None]
  - Disorientation [None]
  - Nausea [None]
  - Blood potassium abnormal [None]
  - Small intestinal obstruction [None]
  - Vomiting [None]
  - Pneumonia [None]
  - Blood magnesium abnormal [None]
  - Hepatic encephalopathy [None]
  - Hepatic cirrhosis [None]
  - Headache [None]
  - Pancreatic enzymes increased [None]
  - Heart rate increased [None]
  - Ammonia abnormal [None]
  - International normalised ratio increased [None]
  - Hepatopulmonary syndrome [None]
  - Dyspnoea [None]
  - Back pain [None]
  - Portal hypertension [None]
  - International normalised ratio decreased [None]
  - Pancreatitis [None]
  - Gastrooesophageal reflux disease [None]
  - Burns first degree [None]
  - Oedema peripheral [None]

NARRATIVE: CASE EVENT DATE: 20130831
